FAERS Safety Report 6165469-3 (Version None)
Quarter: 2009Q2

REPORT INFORMATION
  Report Type: 
  Country: None (occurrence: None)
  Receive Date: 20090423
  Receipt Date: 20090408
  Transmission Date: 20091009
  Serious: Yes (Hospitalization)
  Sender: FDA-Public Use
  Company Number: DE-GENENTECH-279681

PATIENT
  Sex: Female

DRUGS (6)
  1. BEVACIZUMAB [Suspect]
     Indication: BREAST CANCER
     Dosage: 1350 MG, Q21D
     Route: 042
     Dates: start: 20090226
  2. CYCLOPHOSPHAMIDE [Suspect]
     Indication: BREAST CANCER
     Dosage: 1235 MG, Q21D
     Route: 042
     Dates: start: 20090226
  3. EPIRUBICIN [Suspect]
     Indication: BREAST CANCER
     Dosage: 185 MG, Q21D
     Route: 042
     Dates: start: 20090226
  4. ENALAPRIL [Concomitant]
     Indication: DRUG USE FOR UNKNOWN INDICATION
     Dosage: UNK
  5. KEVATRIL [Concomitant]
     Indication: DRUG USE FOR UNKNOWN INDICATION
     Dosage: UNK
     Dates: start: 20090226
  6. FORTECORTIN [Concomitant]
     Indication: DRUG USE FOR UNKNOWN INDICATION
     Dosage: UNK
     Dates: start: 20090225

REACTIONS (2)
  - DIVERTICULITIS [None]
  - FEBRILE NEUTROPENIA [None]
